FAERS Safety Report 7696048 (Version 7)
Quarter: 2014Q3

REPORT INFORMATION
  Report Type: Spontaneous
  Country: US (occurrence: US)
  Receive Date: 20101207
  Receipt Date: 20140710
  Transmission Date: 20150326
  Serious: Yes (Hospitalization, Other)
  Sender: FDA-Public Use
  Company Number: US-SANOFI-AVENTIS-2010SA068822

PATIENT
  Age: 72 Year
  Sex: Female
  Weight: 60.7 kg

DRUGS (81)
  1. METOPROLOL [Concomitant]
     Active Substance: METOPROLOL
     Route: 048
     Dates: end: 20101015
  2. CALCIUM [Concomitant]
     Active Substance: CALCIUM
  3. SODIUM CHLORIDE. [Concomitant]
     Active Substance: SODIUM CHLORIDE
     Route: 042
     Dates: start: 20121108, end: 20121108
  4. ACETAMINOPHEN W/HYDROCODONE [Concomitant]
     Active Substance: ACETAMINOPHEN\HYDROCODONE
     Route: 048
     Dates: start: 20121025, end: 20121025
  5. BENADRYL [Concomitant]
     Active Substance: DIPHENHYDRAMINE HYDROCHLORIDE
     Dates: start: 20101015, end: 20101114
  6. OXYGEN. [Concomitant]
     Active Substance: OXYGEN
     Dates: start: 20121025
  7. FLURBIPROFEN. [Concomitant]
     Active Substance: FLURBIPROFEN
     Dates: start: 20121108, end: 20121108
  8. WARFARIN [Suspect]
     Active Substance: WARFARIN
     Indication: ATRIAL FIBRILLATION
     Route: 048
     Dates: end: 20101015
  9. NORVASC [Concomitant]
     Active Substance: AMLODIPINE BESYLATE
     Route: 048
     Dates: end: 20101015
  10. MULTIVITAMINS [Concomitant]
     Active Substance: VITAMINS
     Route: 048
     Dates: start: 20121024
  11. ALL OTHER THERAPEUTIC PRODUCTS [Concomitant]
     Active Substance: UNSPECIFIED INGREDIENT
     Dates: start: 20101015, end: 20101015
  12. SODIUM CHLORIDE. [Concomitant]
     Active Substance: SODIUM CHLORIDE
     Dates: start: 20101015, end: 20101114
  13. VANCOMYCIN HYDROCHLORIDE. [Concomitant]
     Active Substance: VANCOMYCIN HYDROCHLORIDE
     Dates: start: 20121108, end: 20121108
  14. CALCIUM CARBONATE/VITAMIN D NOS [Concomitant]
     Route: 048
     Dates: start: 20121024
  15. FENTANYL. [Concomitant]
     Active Substance: FENTANYL
     Route: 042
     Dates: start: 20121108, end: 20121108
  16. FLURBIPROFEN. [Concomitant]
     Active Substance: FLURBIPROFEN
     Dates: start: 20121025, end: 20121025
  17. PHENYLEPHRINE HYDROCHLORIDE. [Concomitant]
     Active Substance: PHENYLEPHRINE HYDROCHLORIDE
     Dates: start: 20121025, end: 20121025
  18. PREVACID [Concomitant]
     Active Substance: LANSOPRAZOLE
     Route: 048
  19. HYDROCHLOROTHIAZIDE/TRIAMTERENE [Concomitant]
     Active Substance: HYDROCHLOROTHIAZIDE\TRIAMTERENE
     Dosage: 37.5/25 MG
     Route: 048
  20. MULTAQ [Suspect]
     Active Substance: DRONEDARONE
     Indication: ATRIAL FIBRILLATION
     Route: 048
     Dates: start: 20100421, end: 20101015
  21. ACETAMINOPHEN. [Concomitant]
     Active Substance: ACETAMINOPHEN
     Dates: start: 20101015, end: 20101114
  22. MAALOX ANTACID [Concomitant]
     Active Substance: ALUMINUM HYDROXIDE\DIMETHICONE\MAGNESIUM HYDROXIDE
     Dates: start: 20101015, end: 20101114
  23. ZOFRAN [Concomitant]
     Active Substance: ONDANSETRON HYDROCHLORIDE
     Dates: start: 20101018, end: 20101117
  24. FLAGYL [Concomitant]
     Active Substance: METRONIDAZOLE\METRONIDAZOLE HYDROCHLORIDE
     Dates: start: 20101015, end: 20101029
  25. I.V. SOLUTIONS [Concomitant]
     Dates: start: 20121025
  26. EPINEPHRINE HYDROCHLORIDE. [Concomitant]
     Active Substance: EPINEPHRINE HYDROCHLORIDE
     Dates: start: 20121108, end: 20121108
  27. PREDNISONE. [Concomitant]
     Active Substance: PREDNISONE
     Route: 048
     Dates: start: 20121024
  28. TETRACAINE HYDROCHLORIDE. [Concomitant]
     Active Substance: TETRACAINE HYDROCHLORIDE
     Dates: start: 20121025, end: 20121025
  29. TROPICAMIDE. [Concomitant]
     Active Substance: TROPICAMIDE
     Dates: start: 20121108, end: 20121108
  30. MIDAZOLAM HYDROCHLORIDE. [Concomitant]
     Active Substance: MIDAZOLAM HYDROCHLORIDE
     Dates: start: 20121108, end: 20121108
  31. CENTRUM [Concomitant]
     Active Substance: VITAMINS
  32. VITAMIN K [Concomitant]
     Active Substance: PHYTONADIONE
     Dates: start: 20101015, end: 20101015
  33. ZOSYN [Concomitant]
     Active Substance: PIPERACILLIN SODIUM\TAZOBACTAM SODIUM
     Dates: start: 20101016, end: 20101029
  34. AMBIEN [Concomitant]
     Active Substance: ZOLPIDEM TARTRATE
     Dates: start: 20101015, end: 20101015
  35. LIDOCAINE HYDROCHLORIDE. [Concomitant]
     Active Substance: LIDOCAINE HYDROCHLORIDE
     Dates: start: 20101015, end: 20101015
  36. LIDOCAINE HYDROCHLORIDE. [Concomitant]
     Active Substance: LIDOCAINE HYDROCHLORIDE
     Route: 042
     Dates: start: 20121025, end: 20121025
  37. TACROLIMUS. [Concomitant]
     Active Substance: TACROLIMUS
     Route: 048
     Dates: start: 20121024
  38. FENTANYL. [Concomitant]
     Active Substance: FENTANYL
     Route: 042
     Dates: start: 20121108, end: 20121108
  39. DEXAMETHASONE. [Concomitant]
     Active Substance: DEXAMETHASONE
     Dates: start: 20121108, end: 20121108
  40. TETRACAINE HYDROCHLORIDE. [Concomitant]
     Active Substance: TETRACAINE HYDROCHLORIDE
     Dates: start: 20121108, end: 20121108
  41. MOXIFLOXACIN HYDROCHLORIDE. [Concomitant]
     Active Substance: MOXIFLOXACIN HYDROCHLORIDE
     Dates: start: 20121108, end: 20121108
  42. TROPICAMIDE. [Concomitant]
     Active Substance: TROPICAMIDE
     Dates: start: 20121025, end: 20121025
  43. MIDAZOLAM HYDROCHLORIDE. [Concomitant]
     Active Substance: MIDAZOLAM HYDROCHLORIDE
     Dates: start: 20121025, end: 20121025
  44. PRILOSEC [Concomitant]
     Active Substance: OMEPRAZOLE MAGNESIUM
     Route: 048
     Dates: start: 20121024
  45. SYNTHROID [Concomitant]
     Active Substance: LEVOTHYROXINE SODIUM
     Route: 048
     Dates: start: 20121024
  46. BIOTIN [Concomitant]
     Active Substance: BIOTIN
  47. MULTIVITAMINS [Concomitant]
     Active Substance: VITAMINS
  48. SODIUM CHLORIDE. [Concomitant]
     Active Substance: SODIUM CHLORIDE
     Dates: start: 20101015, end: 20101114
  49. DILAUDID [Concomitant]
     Active Substance: HYDROMORPHONE HYDROCHLORIDE
     Dates: start: 20101015, end: 20101022
  50. ZOFRAN [Concomitant]
     Active Substance: ONDANSETRON HYDROCHLORIDE
     Route: 042
     Dates: start: 20121108, end: 20121108
  51. GASTROGRAFIN [Concomitant]
     Active Substance: DIATRIZOATE MEGLUMINE\DIATRIZOATE SODIUM
     Dates: start: 20101016, end: 20101016
  52. EPINEPHRINE HYDROCHLORIDE. [Concomitant]
     Active Substance: EPINEPHRINE HYDROCHLORIDE
     Dates: start: 20121025, end: 20121025
  53. ASPIRIN. [Concomitant]
     Active Substance: ASPIRIN
     Route: 048
     Dates: start: 20121024
  54. FENTANYL. [Concomitant]
     Active Substance: FENTANYL
     Route: 042
     Dates: start: 20121025, end: 20121025
  55. MEPERIDINE HYDROCHLORIDE. [Concomitant]
     Active Substance: MEPERIDINE HYDROCHLORIDE
     Route: 042
     Dates: start: 20121025, end: 20121025
  56. MOXIFLOXACIN HYDROCHLORIDE. [Concomitant]
     Active Substance: MOXIFLOXACIN HYDROCHLORIDE
     Dates: start: 20121025, end: 20121025
  57. CHONDROITIN SULFATE/HYALURONATE SODIUM [Concomitant]
     Dates: start: 20121025, end: 20121025
  58. PHENYLEPHRINE HYDROCHLORIDE. [Concomitant]
     Active Substance: PHENYLEPHRINE HYDROCHLORIDE
     Dates: start: 20121108, end: 20121108
  59. METOPROLOL [Concomitant]
     Active Substance: METOPROLOL
     Route: 048
     Dates: start: 20121024
  60. NORVASC [Concomitant]
     Active Substance: AMLODIPINE BESYLATE
     Route: 048
     Dates: start: 20121024
  61. PRILOSEC [Concomitant]
     Active Substance: OMEPRAZOLE MAGNESIUM
  62. ALPRAZOLAM. [Concomitant]
     Active Substance: ALPRAZOLAM
     Route: 048
  63. SODIUM CHLORIDE. [Concomitant]
     Active Substance: SODIUM CHLORIDE
     Route: 042
     Dates: start: 20121025, end: 20121025
  64. VISIPAQUE [Concomitant]
     Active Substance: IODIXANOL
     Dates: start: 20101015, end: 20101015
  65. ZOFRAN [Concomitant]
     Active Substance: ONDANSETRON HYDROCHLORIDE
     Route: 042
     Dates: start: 20121025, end: 20121025
  66. PROTONIX [Concomitant]
     Active Substance: PANTOPRAZOLE SODIUM
     Dates: start: 20101015, end: 20101114
  67. LEVAQUIN [Concomitant]
     Active Substance: LEVOFLOXACIN
     Dates: start: 20101017, end: 20101031
  68. VANCOMYCIN HYDROCHLORIDE. [Concomitant]
     Active Substance: VANCOMYCIN HYDROCHLORIDE
     Dates: start: 20121025, end: 20121025
  69. FENTANYL. [Concomitant]
     Active Substance: FENTANYL
     Route: 042
     Dates: start: 20121025, end: 20121025
  70. DEXAMETHASONE. [Concomitant]
     Active Substance: DEXAMETHASONE
     Dates: start: 20121025, end: 20121025
  71. POVIDONE IODINE [Concomitant]
     Active Substance: POVIDONE-IODINE
     Dates: start: 20121025, end: 20121025
  72. CHONDROITIN SULFATE/HYALURONATE SODIUM [Concomitant]
     Dates: start: 20121108, end: 20121108
  73. SYNTHROID [Concomitant]
     Active Substance: LEVOTHYROXINE SODIUM
     Route: 048
  74. SODIUM CHLORIDE. [Concomitant]
     Active Substance: SODIUM CHLORIDE
     Dates: start: 20101015, end: 20101015
  75. SODIUM CHLORIDE. [Concomitant]
     Active Substance: SODIUM CHLORIDE
     Dosage: REPORTED AS 1000 (UNITS NOT PROVIDED)
     Dates: start: 20101015, end: 20101015
  76. ZOFRAN [Concomitant]
     Active Substance: ONDANSETRON HYDROCHLORIDE
     Dates: start: 20101015, end: 20101018
  77. ZOFRAN [Concomitant]
     Active Substance: ONDANSETRON HYDROCHLORIDE
     Dates: start: 20101018, end: 20101018
  78. LIDOCAINE HYDROCHLORIDE. [Concomitant]
     Active Substance: LIDOCAINE HYDROCHLORIDE
     Dates: start: 20121108, end: 20121108
  79. LIDOCAINE HYDROCHLORIDE. [Concomitant]
     Active Substance: LIDOCAINE HYDROCHLORIDE
     Dates: start: 20121108, end: 20121108
  80. ANTIBIOTICS [Concomitant]
     Active Substance: UNSPECIFIED INGREDIENT
     Dates: start: 20121025
  81. MAGNESIUM OXIDE. [Concomitant]
     Active Substance: MAGNESIUM OXIDE
     Route: 048
     Dates: start: 20121024

REACTIONS (43)
  - Pancytopenia [Unknown]
  - Cataract [Unknown]
  - Anaemia [Recovering/Resolving]
  - Liver function test abnormal [Recovering/Resolving]
  - Anxiety [Recovering/Resolving]
  - Hyponatraemia [Recovered/Resolved]
  - Renal impairment [Unknown]
  - Aortic dilatation [Unknown]
  - Ascites [Recovering/Resolving]
  - Decreased appetite [Recovering/Resolving]
  - Presyncope [Recovering/Resolving]
  - Palpitations [Unknown]
  - Respiratory failure [Unknown]
  - Intestinal ischaemia [Unknown]
  - Hepatic enzyme increased [Recovering/Resolving]
  - Jaundice [Recovering/Resolving]
  - Hepatic encephalopathy [Recovering/Resolving]
  - Pleural effusion [Recovering/Resolving]
  - Nausea [Recovering/Resolving]
  - Hypovolaemia [Unknown]
  - Aortic aneurysm rupture [Unknown]
  - Pancreatitis [Unknown]
  - Pelvic inflammatory disease [Unknown]
  - Visual acuity reduced [Unknown]
  - Hepatic failure [Recovering/Resolving]
  - International normalised ratio increased [Recovering/Resolving]
  - Abdominal distension [Recovering/Resolving]
  - Hepatic steatosis [Unknown]
  - Ileus paralytic [Unknown]
  - Blood bilirubin increased [Recovering/Resolving]
  - Vomiting [Recovering/Resolving]
  - Abdominal discomfort [Recovering/Resolving]
  - Insomnia [Unknown]
  - Small intestinal obstruction [Unknown]
  - Asthenia [Recovering/Resolving]
  - Diarrhoea [Recovering/Resolving]
  - Blood potassium increased [Unknown]
  - Cholelithiasis [Unknown]
  - Diverticulum [Unknown]
  - Skin disorder [Unknown]
  - Coagulopathy [Recovering/Resolving]
  - Abdominal pain [Recovering/Resolving]
  - Pain [Recovering/Resolving]

NARRATIVE: CASE EVENT DATE: 201010
